FAERS Safety Report 10523175 (Version 1)
Quarter: 2014Q4

REPORT INFORMATION
  Report Type: Spontaneous
  Country: US (occurrence: US)
  Receive Date: 20141016
  Receipt Date: 20141016
  Transmission Date: 20150528
  Serious: Yes (Other)
  Sender: FDA-Public Use
  Company Number: US-ACTAVIS-2014-21857

PATIENT
  Age: 49 Year
  Sex: Male
  Weight: 71 kg

DRUGS (1)
  1. LORAZEPAM (WATSON LABORATORIES) [Suspect]
     Active Substance: LORAZEPAM
     Indication: ANXIETY
     Dosage: 1 MG, SINGLE
     Route: 048
     Dates: start: 201406, end: 201406

REACTIONS (10)
  - Heart rate increased [Unknown]
  - Presyncope [Unknown]
  - Headache [Unknown]
  - Nausea [Unknown]
  - Tremor [Unknown]
  - Blood pressure increased [Unknown]
  - Drug ineffective [Unknown]
  - Insomnia [Unknown]
  - Dizziness [Unknown]
  - Anxiety [Unknown]

NARRATIVE: CASE EVENT DATE: 201406
